FAERS Safety Report 8073276-X (Version None)
Quarter: 2012Q1

REPORT INFORMATION
  Report Type: 
  Country: None (occurrence: None)
  Receive Date: 20120120
  Receipt Date: 20120104
  Transmission Date: 20120608
  Serious: Yes (Death)
  Sender: FDA-Public Use
  Company Number: 1158730

PATIENT
  Age: 52 Year
  Sex: Female

DRUGS (2)
  1. VINCRISTINE SULFATE [Suspect]
     Indication: CENTRAL NERVOUS SYSTEM LYMPHOMA
     Dosage: 2 MG, OTHER
     Route: 050
  2. METHOTREXATE [Concomitant]

REACTIONS (8)
  - BRADYCARDIA [None]
  - HYPOTENSION [None]
  - COMA [None]
  - MEDICATION ERROR [None]
  - INTRACRANIAL PRESSURE INCREASED [None]
  - RESPIRATORY FAILURE [None]
  - ENCEPHALOPATHY [None]
  - AUTONOMIC NERVOUS SYSTEM IMBALANCE [None]
